FAERS Safety Report 15314212 (Version 2)
Quarter: 2018Q3

REPORT INFORMATION
  Report Type: Spontaneous
  Country: US (occurrence: US)
  Receive Date: 20180824
  Receipt Date: 20180828
  Transmission Date: 20181010
  Serious: Yes (Other)
  Sender: FDA-Public Use
  Company Number: US-PFIZER INC-2018337518

PATIENT
  Age: 73 Year
  Sex: Male
  Weight: 77.98 kg

DRUGS (5)
  1. DEPO?TESTOSTERONE [Suspect]
     Active Substance: TESTOSTERONE CYPIONATE
     Dosage: UNK (WENT TO 160)
  2. DEPO?TESTOSTERONE [Suspect]
     Active Substance: TESTOSTERONE CYPIONATE
     Dosage: UNK (REDUCED IT DOWN TO 180)
  3. DEPO?TESTOSTERONE [Suspect]
     Active Substance: TESTOSTERONE CYPIONATE
     Dosage: UNK
     Route: 030
     Dates: start: 2006
  4. DEPO?TESTOSTERONE [Suspect]
     Active Substance: TESTOSTERONE CYPIONATE
     Dosage: UNK (SET IT BACK TO 140) (140 UNITS AND I GET IT EVERY TWO WEEKS)
  5. DEPO?TESTOSTERONE [Suspect]
     Active Substance: TESTOSTERONE CYPIONATE
     Dosage: 200 MG, UNK

REACTIONS (6)
  - Injection site pain [Unknown]
  - Asthenia [Not Recovered/Not Resolved]
  - Needle issue [Unknown]
  - Asthenia [Unknown]
  - Parkinson^s disease [Unknown]
  - Anaemia [Unknown]
